FAERS Safety Report 20680738 (Version 3)
Quarter: 2022Q2

REPORT INFORMATION
  Report Type: Spontaneous
  Country: US (occurrence: US)
  Receive Date: 20220406
  Receipt Date: 20220511
  Transmission Date: 20220721
  Serious: No
  Sender: FDA-Public Use
  Company Number: US-Millicent Holdings Ltd.-MILL20220104

PATIENT
  Age: 57 Year
  Sex: Female

DRUGS (2)
  1. FEMRING [Suspect]
     Active Substance: ESTRADIOL ACETATE
     Indication: Menopausal symptoms
     Dosage: 0.05 MG/DAY
     Route: 067
     Dates: start: 2022, end: 2022
  2. FEMRING [Suspect]
     Active Substance: ESTRADIOL ACETATE
     Dosage: UNKNOWN
     Route: 067

REACTIONS (2)
  - Drug ineffective [Unknown]
  - Hot flush [Unknown]

NARRATIVE: CASE EVENT DATE: 20220101
